FAERS Safety Report 15598314 (Version 1)
Quarter: 2018Q4

REPORT INFORMATION
  Report Type: Spontaneous
  Country: US (occurrence: US)
  Receive Date: 20181108
  Receipt Date: 20181108
  Transmission Date: 20190205
  Serious: No
  Sender: FDA-Public Use
  Company Number: US-ALLERGAN-1835552US

PATIENT
  Age: 78 Year
  Sex: Female

DRUGS (2)
  1. ESTRADIOL. [Concomitant]
     Active Substance: ESTRADIOL
     Indication: BLADDER DISCOMFORT
     Dosage: UNK
     Route: 067
     Dates: start: 20180713
  2. RAPAFLO [Suspect]
     Active Substance: SILODOSIN
     Indication: BLADDER DISCOMFORT
     Dosage: 8 MG, QD
     Route: 048
     Dates: start: 20180713, end: 20180724

REACTIONS (2)
  - Off label use [Unknown]
  - Dizziness [Recovered/Resolved]
